FAERS Safety Report 23206192 (Version 2)
Quarter: 2023Q4

REPORT INFORMATION
  Report Type: Spontaneous
  Country: US (occurrence: US)
  Receive Date: 20231120
  Receipt Date: 20231215
  Transmission Date: 20240110
  Serious: Yes (Other)
  Sender: FDA-Public Use
  Company Number: US-BRISTOL-MYERS SQUIBB COMPANY-2023-164819

PATIENT
  Age: 72 Year
  Sex: Male
  Weight: 102.97 kg

DRUGS (1)
  1. POMALYST [Suspect]
     Active Substance: POMALIDOMIDE
     Indication: Plasma cell myeloma
     Dosage: 3WKSON,1WKOFF (ONCE,21 DAYS )
     Route: 048

REACTIONS (3)
  - Thrombosis [Unknown]
  - Constipation [Unknown]
  - Fatigue [Unknown]
